FAERS Safety Report 5961284-1 (Version None)
Quarter: 2008Q4

REPORT INFORMATION
  Report Type: 
  Country: None (occurrence: None)
  Receive Date: 20081121
  Receipt Date: 20081112
  Transmission Date: 20090506
  Serious: Yes (Other)
  Sender: FDA-Public Use
  Company Number: US-ABBOTT-08P-163-0487501-00

PATIENT
  Sex: Female
  Weight: 107.6 kg

DRUGS (13)
  1. HUMIRA [Suspect]
     Indication: CROHN'S DISEASE
     Dates: start: 20080606, end: 20080815
  2. HUMIRA [Suspect]
     Indication: ARTHRITIS
  3. HUMIRA [Suspect]
     Indication: SYSTEMIC LUPUS ERYTHEMATOSUS
  4. INFLIXIMAB [Concomitant]
     Indication: CROHN'S DISEASE
     Dates: start: 20081107
  5. INFLIXIMAB [Concomitant]
     Indication: ARTHRITIS
  6. INFLIXIMAB [Concomitant]
     Indication: SYSTEMIC LUPUS ERYTHEMATOSUS
  7. LOMOTIL [Concomitant]
     Indication: DIARRHOEA
  8. TRAVOCORT [Concomitant]
     Indication: MUSCLE RELAXANT THERAPY
  9. PREGABALIN [Concomitant]
     Indication: NERVE INJURY
  10. LANSOPRAZOLE [Concomitant]
     Indication: GASTROOESOPHAGEAL REFLUX DISEASE
  11. OXYCODONE HCL [Concomitant]
     Indication: PAIN
  12. PROMETHAZINE [Concomitant]
     Indication: NAUSEA
  13. METHOTREXATE [Concomitant]
     Indication: ARTHRITIS

REACTIONS (12)
  - ABNORMAL BEHAVIOUR [None]
  - ARTHRITIS [None]
  - BLOOD GLUCOSE INCREASED [None]
  - BLOOD PRESSURE DECREASED [None]
  - BLOOD PRESSURE INCREASED [None]
  - BRONCHIAL DISORDER [None]
  - DIZZINESS [None]
  - FEELING ABNORMAL [None]
  - HALLUCINATION [None]
  - LOSS OF CONSCIOUSNESS [None]
  - LUNG DISORDER [None]
  - WHEEZING [None]
